FAERS Safety Report 26174106 (Version 1)
Quarter: 2025Q4

REPORT INFORMATION
  Report Type: Spontaneous
  Country: US (occurrence: US)
  Receive Date: 20251218
  Receipt Date: 20251218
  Transmission Date: 20260117
  Serious: Yes (Hospitalization)
  Sender: MYLAN
  Company Number: US-MYLANLABS-2025M1106595

PATIENT
  Age: 39 Year
  Sex: Male

DRUGS (16)
  1. RIFAMPIN [Suspect]
     Active Substance: RIFAMPIN
     Indication: Tuberculosis
     Dosage: UNK, COMPRISED OF RIPE THERAPY
  2. RIFAMPIN [Suspect]
     Active Substance: RIFAMPIN
     Dosage: UNK, COMPRISED OF RIPE THERAPY
     Route: 065
  3. RIFAMPIN [Suspect]
     Active Substance: RIFAMPIN
     Dosage: UNK, COMPRISED OF RIPE THERAPY
     Route: 065
  4. RIFAMPIN [Suspect]
     Active Substance: RIFAMPIN
     Dosage: UNK, COMPRISED OF RIPE THERAPY
  5. ETHAMBUTOL [Suspect]
     Active Substance: ETHAMBUTOL HYDROCHLORIDE
     Indication: Tuberculosis
     Dosage: UNK,COMPRISED OF RIPE THERAPY
  6. ETHAMBUTOL [Suspect]
     Active Substance: ETHAMBUTOL HYDROCHLORIDE
     Dosage: UNK,COMPRISED OF RIPE THERAPY
     Route: 065
  7. ETHAMBUTOL [Suspect]
     Active Substance: ETHAMBUTOL HYDROCHLORIDE
     Dosage: UNK,COMPRISED OF RIPE THERAPY
     Route: 065
  8. ETHAMBUTOL [Suspect]
     Active Substance: ETHAMBUTOL HYDROCHLORIDE
     Dosage: UNK,COMPRISED OF RIPE THERAPY
  9. ISONIAZID [Suspect]
     Active Substance: ISONIAZID
     Indication: Tuberculosis
     Dosage: UNK, COMPRISED OF RIPE THERAPY
  10. ISONIAZID [Suspect]
     Active Substance: ISONIAZID
     Dosage: UNK, COMPRISED OF RIPE THERAPY
     Route: 065
  11. ISONIAZID [Suspect]
     Active Substance: ISONIAZID
     Dosage: UNK, COMPRISED OF RIPE THERAPY
     Route: 065
  12. ISONIAZID [Suspect]
     Active Substance: ISONIAZID
     Dosage: UNK, COMPRISED OF RIPE THERAPY
  13. PYRAZINAMIDE [Suspect]
     Active Substance: PYRAZINAMIDE
     Indication: Tuberculosis
     Dosage: UNK, COMPRISED OF RIPE THERAPY
  14. PYRAZINAMIDE [Suspect]
     Active Substance: PYRAZINAMIDE
     Dosage: UNK, COMPRISED OF RIPE THERAPY
     Route: 065
  15. PYRAZINAMIDE [Suspect]
     Active Substance: PYRAZINAMIDE
     Dosage: UNK, COMPRISED OF RIPE THERAPY
     Route: 065
  16. PYRAZINAMIDE [Suspect]
     Active Substance: PYRAZINAMIDE
     Dosage: UNK, COMPRISED OF RIPE THERAPY

REACTIONS (4)
  - Renal tubular necrosis [Recovering/Resolving]
  - Tubulointerstitial nephritis [Recovering/Resolving]
  - Acute kidney injury [Recovering/Resolving]
  - Metabolic disorder [Recovering/Resolving]
